FAERS Safety Report 15012383 (Version 3)
Quarter: 2018Q4

REPORT INFORMATION
  Report Type: Spontaneous
  Country: US (occurrence: US)
  Receive Date: 20180614
  Receipt Date: 20181129
  Transmission Date: 20190204
  Serious: Yes (Hospitalization, Other)
  Sender: FDA-Public Use
  Company Number: US-OTSUKA-2018_015556

PATIENT
  Sex: Male
  Weight: 94 kg

DRUGS (4)
  1. ABILIFY [Suspect]
     Active Substance: ARIPIPRAZOLE
     Indication: MAJOR DEPRESSION
  2. ABILIFY [Suspect]
     Active Substance: ARIPIPRAZOLE
     Indication: BIPOLAR DISORDER
     Dosage: 20 MG, QD
     Route: 065
     Dates: start: 2008
  3. ARIPIPRAZOLE. [Concomitant]
     Active Substance: ARIPIPRAZOLE
     Indication: PRODUCT USED FOR UNKNOWN INDICATION
     Dosage: UNK
     Route: 065
     Dates: start: 20160421, end: 2018
  4. TRAZODONE [Concomitant]
     Active Substance: TRAZODONE HYDROCHLORIDE
     Indication: PRODUCT USED FOR UNKNOWN INDICATION
     Dosage: 100 MG, Q3HR (EVERY THREE HOURS)

REACTIONS (30)
  - Glycosylated haemoglobin increased [Unknown]
  - Gambling disorder [Recovered/Resolved]
  - Loss of employment [Unknown]
  - Injury [Unknown]
  - Emotional distress [Unknown]
  - Blood triglycerides increased [Unknown]
  - Suicide attempt [Not Recovered/Not Resolved]
  - Vitamin D deficiency [Unknown]
  - Blood cholesterol increased [Unknown]
  - Obesity [Unknown]
  - Compulsive shopping [Not Recovered/Not Resolved]
  - Insomnia [Unknown]
  - Mental disorder [Unknown]
  - Suicidal ideation [Not Recovered/Not Resolved]
  - Bipolar disorder [Unknown]
  - Dyslipidaemia [Unknown]
  - Back pain [Unknown]
  - Nasal congestion [Unknown]
  - Economic problem [Unknown]
  - Low density lipoprotein increased [Unknown]
  - Blood glucose abnormal [Unknown]
  - Liver function test abnormal [Unknown]
  - Pyrexia [Unknown]
  - Diabetes mellitus [Unknown]
  - Headache [Unknown]
  - Divorced [Unknown]
  - Mean cell haemoglobin concentration increased [Unknown]
  - Epilepsy [Unknown]
  - Neuropsychiatric symptoms [Unknown]
  - Alanine aminotransferase increased [Unknown]

NARRATIVE: CASE EVENT DATE: 2008
